FAERS Safety Report 11722032 (Version 3)
Quarter: 2019Q4

REPORT INFORMATION
  Report Type: Spontaneous
  Country: US (occurrence: US)
  Receive Date: 20151111
  Receipt Date: 20191126
  Transmission Date: 20200122
  Serious: Yes (Death, Hospitalization)
  Sender: FDA-Public Use
  Company Number: US-JNJFOC-20151003816

PATIENT
  Age: 78 Year
  Sex: Female

DRUGS (3)
  1. XARELTO [Suspect]
     Active Substance: RIVAROXABAN
     Indication: THROMBOSIS PROPHYLAXIS
  2. XARELTO [Suspect]
     Active Substance: RIVAROXABAN
     Indication: ATRIAL FIBRILLATION
  3. XARELTO [Suspect]
     Active Substance: RIVAROXABAN
     Indication: CEREBROVASCULAR ACCIDENT PROPHYLAXIS
     Dosage: 15 MG TWICE DAILY FOR 21 DAYS THEN 20 MG ONCE DAILY
     Route: 048
     Dates: start: 20130813, end: 20131125

REACTIONS (7)
  - Epistaxis [Unknown]
  - Haematuria [Unknown]
  - Sepsis [Fatal]
  - Gastrointestinal haemorrhage [Unknown]
  - Inappropriate schedule of product administration [Unknown]
  - Respiratory failure [Fatal]
  - Off label use [Unknown]

NARRATIVE: CASE EVENT DATE: 20130813
